FAERS Safety Report 12397425 (Version 3)
Quarter: 2016Q2

REPORT INFORMATION
  Report Type: Spontaneous
  Country: GB (occurrence: GB)
  Receive Date: 20160524
  Receipt Date: 20160628
  Transmission Date: 20160815
  Serious: Yes (Other)
  Sender: FDA-Public Use
  Company Number: GB-GLAXOSMITHKLINE-GB2016GSK073077

PATIENT
  Age: 33 Year
  Sex: Female

DRUGS (3)
  1. IMIGRAN INJECT [Suspect]
     Active Substance: SUMATRIPTAN SUCCINATE
     Indication: HEMIPLEGIC MIGRAINE
     Dosage: UNK
     Dates: start: 201510
  2. ASPIRIN. [Concomitant]
     Active Substance: ASPIRIN
     Indication: PRODUCT USED FOR UNKNOWN INDICATION
     Dosage: UNK
  3. PARACETAMOL [Concomitant]
     Active Substance: ACETAMINOPHEN
     Indication: PRODUCT USED FOR UNKNOWN INDICATION
     Dosage: UNK

REACTIONS (7)
  - Migraine [Recovering/Resolving]
  - Muscular weakness [Recovering/Resolving]
  - Feeling abnormal [Recovering/Resolving]
  - Hemiplegia [Recovering/Resolving]
  - Wrong technique in product usage process [Unknown]
  - Product quality issue [Unknown]
  - Tremor [Unknown]

NARRATIVE: CASE EVENT DATE: 20160517
